FAERS Safety Report 25553994 (Version 1)
Quarter: 2025Q3

REPORT INFORMATION
  Report Type: Report from Study
  Country: GB (occurrence: GB)
  Receive Date: 20250715
  Receipt Date: 20250715
  Transmission Date: 20251021
  Serious: Yes (Death)
  Sender: RANBAXY
  Company Number: GB-ALMIRALL-GB-2025-2481

PATIENT
  Age: 72 Year
  Sex: Female
  Weight: 43 kg

DRUGS (6)
  1. TILDRAKIZUMAB [Suspect]
     Active Substance: TILDRAKIZUMAB
     Indication: Psoriasis
     Dosage: 100 MILLIGRAM, DAILY
     Route: 065
     Dates: start: 20231101, end: 20250124
  2. LISINOPRIL [Concomitant]
     Active Substance: LISINOPRIL
     Indication: Product used for unknown indication
     Route: 065
     Dates: start: 20030203, end: 20250124
  3. Relvar ellipta inhaler [Concomitant]
     Indication: Product used for unknown indication
     Route: 065
     Dates: start: 20160610, end: 20250124
  4. BISOPROLOL [Concomitant]
     Active Substance: BISOPROLOL
     Indication: Product used for unknown indication
     Route: 065
     Dates: start: 20160610, end: 20250124
  5. FUROSEMIDE [Concomitant]
     Active Substance: FUROSEMIDE
     Indication: Product used for unknown indication
     Route: 065
     Dates: start: 20210916, end: 20250124
  6. ALFACALCIDOL [Concomitant]
     Active Substance: ALFACALCIDOL
     Indication: Product used for unknown indication
     Route: 065
     Dates: start: 20220707, end: 20250124

REACTIONS (1)
  - Death [Fatal]

NARRATIVE: CASE EVENT DATE: 20250101
